FAERS Safety Report 4337109-7 (Version None)
Quarter: 2004Q1

REPORT INFORMATION
  Report Type: 
  Country: None (occurrence: None)
  Receive Date: 20040329
  Receipt Date: 20040115
  Transmission Date: 20041129
  Serious: No
  Sender: FDA-Public Use
  Company Number: USA040156732

PATIENT
  Age: 31 Year
  Sex: Female
  Weight: 80 kg

DRUGS (3)
  1. STRATTERA [Suspect]
     Indication: ANXIETY
     Dosage: 120 MG/DAY
     Dates: start: 20030501
  2. STRATTERA [Suspect]
     Indication: ATTENTION DEFICIT/HYPERACTIVITY DISORDER
     Dosage: 120 MG/DAY
     Dates: start: 20030501
  3. ZOLOFT [Concomitant]

REACTIONS (1)
  - PRESCRIBED OVERDOSE [None]
